FAERS Safety Report 23219334 (Version 1)
Quarter: 2023Q4

REPORT INFORMATION
  Report Type: Spontaneous
  Country: US (occurrence: US)
  Receive Date: 20231122
  Receipt Date: 20231122
  Transmission Date: 20240110
  Serious: Yes (Death, Hospitalization, Other)
  Sender: FDA-Public Use
  Company Number: US-009507513-2311USA006631

PATIENT
  Age: 70 Year
  Sex: Female

DRUGS (1)
  1. KEYTRUDA [Suspect]
     Active Substance: PEMBROLIZUMAB
     Indication: Endometrial cancer
     Dosage: UNK
     Route: 042

REACTIONS (4)
  - Death [Fatal]
  - Procedural haemorrhage [Not Recovered/Not Resolved]
  - Pneumonia [Unknown]
  - Hepatitis [Unknown]

NARRATIVE: CASE EVENT DATE: 20231104
